FAERS Safety Report 4850663-1 (Version None)
Quarter: 2005Q4

REPORT INFORMATION
  Report Type: 
  Country: None (occurrence: None)
  Receive Date: 20051212
  Receipt Date: 20051010
  Transmission Date: 20060501
  Serious: No
  Sender: FDA-Public Use
  Company Number: US-BRISTOL-MYERS SQUIBB COMPANY-13139126

PATIENT
  Age: 72 Year
  Sex: Female
  Weight: 86 kg

DRUGS (4)
  1. CHOLESTYRAMINE [Suspect]
     Indication: DIARRHOEA
     Dosage: DOSAGE FORM = 1 SCOPE
  2. PREDNISONE [Concomitant]
  3. EVISTA [Concomitant]
  4. ATENOLOL [Concomitant]

REACTIONS (2)
  - DRY THROAT [None]
  - EYE PRURITUS [None]
